FAERS Safety Report 8965728 (Version 1)
Quarter: 2012Q4

REPORT INFORMATION
  Report Type: Spontaneous
  Country: CZ (occurrence: None)
  Receive Date: 20121204
  Receipt Date: 20121204
  Transmission Date: 20130627
  Serious: Yes (Life-Threatening)
  Sender: FDA-Public Use
  Company Number: FK201203646

PATIENT
  Age: 47 Year
  Sex: Female

DRUGS (1)
  1. OXALIPLATIN [Suspect]
     Dosage: Intravenous drip
     Route: 041
     Dates: start: 20121003, end: 20121003

REACTIONS (3)
  - Loss of consciousness [None]
  - Foaming at mouth [None]
  - Convulsions local [None]
